FAERS Safety Report 16541917 (Version 1)
Quarter: 2019Q3

REPORT INFORMATION
  Report Type: Spontaneous
  Country: CA (occurrence: CA)
  Receive Date: 20190708
  Receipt Date: 20190708
  Transmission Date: 20191004
  Serious: Yes (Death, Other)
  Sender: FDA-Public Use
  Company Number: CA-REGENERON PHARMACEUTICALS, INC.-2019-41293

PATIENT

DRUGS (1)
  1. EYLEA [Suspect]
     Active Substance: AFLIBERCEPT
     Indication: PRODUCT USED FOR UNKNOWN INDICATION
     Dosage: START AND STOP DATE UNKNOWN. TOTAL OF DOSES RECEIVED AND LAST DOSE PRIOR TO EVENT DATE NOT PROVIDED.
     Route: 031

REACTIONS (1)
  - Myocardial infarction [Fatal]
